FAERS Safety Report 22129690 (Version 4)
Quarter: 2023Q1

REPORT INFORMATION
  Report Type: Report from Study
  Country: CA (occurrence: CA)
  Receive Date: 20230323
  Receipt Date: 20230327
  Transmission Date: 20230418
  Serious: Yes (Other)
  Sender: FDA-Public Use
  Company Number: CA-HLS-202300717

PATIENT
  Sex: Male

DRUGS (2)
  1. CLOZARIL [Suspect]
     Active Substance: CLOZAPINE
     Indication: Product used for unknown indication
     Route: 048
  2. CLOZARIL [Suspect]
     Active Substance: CLOZAPINE
     Indication: Product used for unknown indication
     Dosage: 12.5MG EVERY MORNING AND 350MG EVERY BEDTIME
     Route: 048
     Dates: start: 20150310

REACTIONS (6)
  - Blood pressure increased [Unknown]
  - Abdominal pain upper [Recovered/Resolved]
  - Alcoholism [Unknown]
  - Heart rate increased [Unknown]
  - Treatment noncompliance [Unknown]
  - Tremor [Unknown]
